FAERS Safety Report 9721982 (Version 2)
Quarter: 2013Q4

REPORT INFORMATION
  Report Type: Report from Study
  Country: US (occurrence: US)
  Receive Date: 20131202
  Receipt Date: 20131223
  Transmission Date: 20140711
  Serious: Yes (Death)
  Sender: FDA-Public Use
  Company Number: US-ALEXION PHARMACEUTICALS INC.-A201102084

PATIENT
  Sex: Female
  Weight: 43.5 kg

DRUGS (7)
  1. SOLIRIS [Suspect]
     Indication: PAROXYSMAL NOCTURNAL HAEMOGLOBINURIA
     Dosage: 600 MG, QW X 5 CYCLES
     Route: 042
     Dates: start: 20090108, end: 20090210
  2. SOLIRIS [Suspect]
     Dosage: 900 MG, Q2W
     Route: 042
     Dates: start: 20090210
  3. SOLIRIS [Suspect]
     Dosage: 600 MG QW X 4 WEEKS
     Route: 042
     Dates: start: 20090326
  4. SOLIRIS [Suspect]
     Dosage: 900 MG, Q2W
     Route: 042
     Dates: start: 20090428
  5. SOLIRIS [Suspect]
     Dosage: UNK
     Route: 042
     Dates: start: 20090924, end: 20091009
  6. B12 [Concomitant]
     Dosage: UNK, EVERY MONTH
     Dates: start: 200911
  7. FOLIC ACID [Concomitant]
     Indication: SUPPLEMENTATION THERAPY
     Dosage: UNK

REACTIONS (1)
  - Infection [Fatal]
